FAERS Safety Report 7103011-0 (Version None)
Quarter: 2010Q4

REPORT INFORMATION
  Report Type: 
  Country: None (occurrence: None)
  Receive Date: 20101115
  Receipt Date: 20101104
  Transmission Date: 20110411
  Serious: Yes (Other)
  Sender: FDA-Public Use
  Company Number: GR-JNJFOC-20101101342

PATIENT
  Age: 37 Year
  Sex: Female
  Weight: 80 kg

DRUGS (3)
  1. TOPAMAC [Suspect]
     Indication: EMOTIONAL DISORDER
     Route: 048
     Dates: start: 20041001, end: 20050501
  2. TEGRETOL [Suspect]
     Indication: EMOTIONAL DISORDER
     Route: 048
     Dates: start: 20040801, end: 20041201
  3. QUETIAPINE FUMARATE [Concomitant]
     Indication: EMOTIONAL DISORDER
     Route: 048

REACTIONS (1)
  - POLYARTHRITIS [None]
